FAERS Safety Report 7327203-0 (Version None)
Quarter: 2011Q1

REPORT INFORMATION
  Report Type: 
  Country: None (occurrence: None)
  Receive Date: 20110302
  Receipt Date: 20110301
  Transmission Date: 20110831
  Serious: Yes (Hospitalization)
  Sender: FDA-Public Use
  Company Number: JP-ABBOTT-11P-087-0702840-00

PATIENT
  Sex: Female

DRUGS (11)
  1. PYRIDOXAL PHOSPHATE HYDRATE [Concomitant]
     Indication: PROPHYLAXIS
     Dosage: 30 MG DAILY
     Dates: start: 20100224, end: 20100826
  2. FOLIC ACID [Concomitant]
     Indication: PROPHYLAXIS
     Dosage: 5 MG/W
     Dates: start: 20090702, end: 20100826
  3. ECABET SODIUM HYDRATE [Concomitant]
     Indication: PRODUCT USED FOR UNKNOWN INDICATION
     Dosage: 3 GRAMS DAILY
     Route: 048
     Dates: start: 20090618, end: 20100826
  4. PYRIDOXAL PHOSPHATE HYDRATE [Concomitant]
     Indication: ADVERSE EVENT
  5. FOLIC ACID [Concomitant]
     Indication: ADVERSE EVENT
  6. HUMIRA [Suspect]
     Dates: start: 20100419, end: 20100826
  7. METHOTREXATE [Concomitant]
     Indication: RHEUMATOID ARTHRITIS
     Dosage: 8 MG/W
     Route: 048
     Dates: end: 20100826
  8. ETHYL LOFLAZEPATE [Concomitant]
     Indication: PRODUCT USED FOR UNKNOWN INDICATION
     Dosage: 1 MG DAILY
     Dates: start: 20100324, end: 20100826
  9. HUMIRA [Suspect]
     Indication: RHEUMATOID ARTHRITIS
     Route: 058
     Dates: start: 20091203, end: 20100310
  10. LANSOPRAZOLE [Concomitant]
     Indication: PRODUCT USED FOR UNKNOWN INDICATION
     Dosage: 30 MG DAILY
     Route: 048
     Dates: start: 20090618, end: 20100826
  11. ISONIAZID [Concomitant]
     Indication: ANTIBIOTIC PROPHYLAXIS
     Dosage: 300 MG DAILY
     Dates: start: 20091111, end: 20100826

REACTIONS (1)
  - CARPAL TUNNEL SYNDROME [None]
